FAERS Safety Report 7251819-3 (Version None)
Quarter: 2011Q1

REPORT INFORMATION
  Report Type: 
  Country: None (occurrence: None)
  Receive Date: 20110128
  Receipt Date: 20100118
  Transmission Date: 20110831
  Serious: No
  Sender: FDA-Public Use
  Company Number: US-ABBOTT-10P-163-0620627-00

PATIENT
  Sex: Female
  Weight: 81.72 kg

DRUGS (4)
  1. WOMEN'S MULTIVITAMIN [Concomitant]
     Indication: PRODUCT USED FOR UNKNOWN INDICATION
  2. HUMIRA [Suspect]
     Indication: CROHN'S DISEASE
     Dates: start: 20091202
  3. ERRIN [Suspect]
     Indication: CONTRACEPTION
     Dates: start: 20091201
  4. ASACOL [Concomitant]
     Indication: CROHN'S DISEASE

REACTIONS (3)
  - SWELLING FACE [None]
  - EYE SWELLING [None]
  - URTICARIA [None]
